FAERS Safety Report 10428464 (Version 1)
Quarter: 2014Q3

REPORT INFORMATION
  Report Type: Spontaneous
  Country: NL (occurrence: NL)
  Receive Date: 20140903
  Receipt Date: 20140903
  Transmission Date: 20150326
  Serious: Yes (Hospitalization)
  Sender: FDA-Public Use
  Company Number: PHHY2014NL107702

PATIENT
  Age: 42 Year
  Sex: Female

DRUGS (4)
  1. FLURAZEPAM [Suspect]
     Active Substance: FLURAZEPAM\FLURAZEPAM HYDROCHLORIDE
  2. DULOXETINE [Suspect]
     Active Substance: DULOXETINE
  3. QUETIAPINE [Suspect]
     Active Substance: QUETIAPINE
  4. INSULIN [Suspect]
     Active Substance: INSULIN NOS

REACTIONS (10)
  - Neuroleptic malignant syndrome [Recovering/Resolving]
  - Pyrexia [Recovering/Resolving]
  - Hypertension [Recovering/Resolving]
  - General physical health deterioration [Recovering/Resolving]
  - Blood creatine phosphokinase increased [Recovering/Resolving]
  - Toxicity to various agents [Unknown]
  - Depressed level of consciousness [Recovering/Resolving]
  - Cogwheel rigidity [Recovering/Resolving]
  - Bradykinesia [Recovering/Resolving]
  - Muscle rigidity [Recovering/Resolving]
